FAERS Safety Report 10192769 (Version 1)
Quarter: 2014Q2

REPORT INFORMATION
  Report Type: Spontaneous
  Country: US (occurrence: US)
  Receive Date: 20140523
  Receipt Date: 20140523
  Transmission Date: 20141212
  Serious: No
  Sender: FDA-Public Use
  Company Number: US-ASTRAZENECA-2013SE93075

PATIENT
  Age: 70 Year
  Sex: Female
  Weight: 72.6 kg

DRUGS (7)
  1. PULMICORT RESPULES [Suspect]
     Indication: CHRONIC OBSTRUCTIVE PULMONARY DISEASE
     Dosage: 0.5 MGS/2 ML BID
     Route: 055
     Dates: start: 2012
  2. PULMICORT RESPULES [Suspect]
     Indication: CHRONIC OBSTRUCTIVE PULMONARY DISEASE
     Dosage: GENERIC
     Route: 055
  3. XOPENEX [Concomitant]
     Indication: CHRONIC OBSTRUCTIVE PULMONARY DISEASE
     Dosage: UNKNOWN PRN
  4. ALBUTEROL [Concomitant]
     Indication: CHRONIC OBSTRUCTIVE PULMONARY DISEASE
     Dosage: UNKNOWN PRN
  5. SPIRIVA [Concomitant]
     Indication: CHRONIC OBSTRUCTIVE PULMONARY DISEASE
     Dosage: UNKNOWN UNK
  6. VERAPAMIL [Concomitant]
     Indication: BLOOD PRESSURE
     Dosage: 200 MGS DAILY
  7. LEVOQUIN [Concomitant]
     Indication: ANTIBIOTIC LEVEL
     Dosage: 750 MGS DAILY

REACTIONS (3)
  - Malaise [Recovering/Resolving]
  - Respiratory tract infection [Recovering/Resolving]
  - Off label use [Unknown]
